FAERS Safety Report 4325429-1 (Version None)
Quarter: 2004Q1

REPORT INFORMATION
  Report Type: 
  Country: None (occurrence: None)
  Receive Date: 20040329
  Receipt Date: 20040310
  Transmission Date: 20041129
  Serious: Yes (Hospitalization, Other)
  Sender: FDA-Public Use
  Company Number: PHNR2004AU00757

PATIENT
  Sex: Male

DRUGS (1)
  1. CLOZARIL [Suspect]
     Dosage: 200 - 800 MG/DAY
     Dates: start: 19941116

REACTIONS (3)
  - HEPATIC FAILURE [None]
  - PULMONARY MASS [None]
  - RENAL FAILURE [None]
